FAERS Safety Report 6887905-7 (Version None)
Quarter: 2010Q3

REPORT INFORMATION
  Report Type: 
  Country: None (occurrence: None)
  Receive Date: 20100730
  Receipt Date: 20100728
  Transmission Date: 20110219
  Serious: Yes (Life-Threatening, Hospitalization)
  Sender: FDA-Public Use
  Company Number: ES-SANOFI-AVENTIS-2010SA044230

PATIENT
  Age: 49 Year
  Sex: Male

DRUGS (3)
  1. OXALIPLATIN [Suspect]
     Route: 042
     Dates: start: 20090311, end: 20090311
  2. OXALIPLATIN [Suspect]
     Route: 042
     Dates: start: 20091021, end: 20091021
  3. XELODA [Suspect]
     Route: 048
     Dates: start: 20090311, end: 20091021

REACTIONS (2)
  - CARDIAC ARREST [None]
  - VENTRICULAR FIBRILLATION [None]
